FAERS Safety Report 11049167 (Version 4)
Quarter: 2015Q3

REPORT INFORMATION
  Report Type: Spontaneous
  Country: US (occurrence: US)
  Receive Date: 20150420
  Receipt Date: 20150728
  Transmission Date: 20151125
  Serious: No
  Sender: FDA-Public Use
  Company Number: US-PFIZER INC-2015129829

PATIENT
  Age: 75 Year
  Sex: Female

DRUGS (4)
  1. LYRICA [Suspect]
     Active Substance: PREGABALIN
     Indication: BACK PAIN
     Dosage: 75 MG, 2X/DAY
     Dates: start: 2009, end: 2015
  2. PREMARIN [Suspect]
     Active Substance: ESTROGENS, CONJUGATED
     Indication: HORMONE THERAPY
     Dosage: .625 MG, UNK
     Dates: start: 1984
  3. DETROL LA [Suspect]
     Active Substance: TOLTERODINE TARTRATE
     Indication: HYPERTONIC BLADDER
     Dosage: 4 MG, 1X/DAY
     Dates: start: 2011
  4. LYRICA [Suspect]
     Active Substance: PREGABALIN
     Indication: PAIN IN EXTREMITY

REACTIONS (3)
  - Aphonia [Unknown]
  - Asthma [Not Recovered/Not Resolved]
  - Drug hypersensitivity [Not Recovered/Not Resolved]

NARRATIVE: CASE EVENT DATE: 2013
